FAERS Safety Report 24010993 (Version 2)
Quarter: 2024Q3

REPORT INFORMATION
  Report Type: Spontaneous
  Country: US (occurrence: US)
  Receive Date: 20240625
  Receipt Date: 20240912
  Transmission Date: 20241016
  Serious: Yes (Other)
  Sender: SANOFI AVENTIS
  Company Number: US-SA-SAC20240624000573

PATIENT
  Age: 46 Year
  Sex: Female

DRUGS (1)
  1. DUPIXENT [Suspect]
     Active Substance: DUPILUMAB
     Indication: Asthma
     Dosage: 300 MG, QOW
     Route: 058

REACTIONS (10)
  - Mycobacterium avium complex infection [Unknown]
  - Gingival pain [Unknown]
  - Hyperaesthesia teeth [Unknown]
  - Lacrimation increased [Unknown]
  - Fatigue [Unknown]
  - Toothache [Unknown]
  - Sinusitis [Not Recovered/Not Resolved]
  - Eye pruritus [Unknown]
  - Arthralgia [Unknown]
  - Inappropriate schedule of product administration [Unknown]

NARRATIVE: CASE EVENT DATE: 20240101
